FAERS Safety Report 5405802-0 (Version None)
Quarter: 2007Q3

REPORT INFORMATION
  Report Type: 
  Country: None (occurrence: None)
  Receive Date: 20070802
  Receipt Date: 20070606
  Transmission Date: 20080115
  Serious: Yes (Hospitalization)
  Sender: FDA-Public Use
  Company Number: 000#5#2007-00131

PATIENT
  Age: 66 Year
  Sex: Female
  Weight: 49.8957 kg

DRUGS (19)
  1. ROTIGOTINE (DOSE UNKNOWN), PATCH (SILICONE) (ROTIGOTINE) [Suspect]
     Dosage: 3 MG/24H, IN 1 D, TRANSDERMAL
     Route: 062
     Dates: start: 20050914
  2. ROTIGOTINE-TRIAL [Concomitant]
  3. SUMATRIPTAN SUCCINATE [Concomitant]
  4. METHYLPREDNISOLONE 16MG TAB [Concomitant]
  5. DICLOFENAC [Concomitant]
  6. ONDANSETRON HYRDOCHLORIDE [Concomitant]
  7. HEPARIN-FRACTION, SODIUM SALT [Concomitant]
  8. INFLUENZA VIRUS VACCINE POLYVALENT [Concomitant]
  9. PSEUDOEPHEDRINE HYDROCHLORIDE [Concomitant]
  10. MUCINEX [Concomitant]
  11. ACETYLSALICYLIC ACID SRT [Concomitant]
  12. ISOSORBIDE MONONITRATE [Concomitant]
  13. PANTOPRAZOLE SODIUM [Concomitant]
  14. PARACETAMOL [Concomitant]
  15. PROPOXYPHENE NAPSYLATE W/ ACETAMINOPHEN [Concomitant]
  16. GLYCERYL TRINITRATE [Concomitant]
  17. MIDAZOLAM HYDROCHLORIDE [Concomitant]
  18. SODIUM CHLORIDE 0.9% [Concomitant]
  19. SODIUM CHLORIDE [Concomitant]

REACTIONS (1)
  - CHEST DISCOMFORT [None]
